FAERS Safety Report 10657472 (Version 1)
Quarter: 2014Q4

REPORT INFORMATION
  Report Type: Spontaneous
  Country: US (occurrence: US)
  Receive Date: 20141217
  Receipt Date: 20141217
  Transmission Date: 20150529
  Serious: No
  Sender: FDA-Public Use
  Company Number: US-GLAXOSMITHKLINE-A1046748A

PATIENT

DRUGS (1)
  1. VOTRIENT [Suspect]
     Active Substance: PAZOPANIB HYDROCHLORIDE
     Indication: RENAL CANCER
     Dosage: 200 MG TABLETS, TWICE DAILY, TOTAL DAILY DOSE OF 400 MG
     Route: 048
     Dates: start: 20130723

REACTIONS (2)
  - Hypertension [Unknown]
  - Protein urine present [Unknown]
